FAERS Safety Report 10244591 (Version 2)
Quarter: 2014Q2

REPORT INFORMATION
  Report Type: Spontaneous
  Country: CA (occurrence: CA)
  Receive Date: 20140618
  Receipt Date: 20140625
  Transmission Date: 20141212
  Serious: Yes (Other)
  Sender: FDA-Public Use
  Company Number: CA-VIIV HEALTHCARE LIMITED-A1077152A

PATIENT
  Age: 46 Year
  Sex: Male

DRUGS (6)
  1. KIVEXA [Suspect]
     Indication: HIV INFECTION
     Dosage: 1TAB UNKNOWN
     Route: 048
     Dates: start: 20140514, end: 20140517
  2. TIVICAY [Suspect]
     Indication: HIV INFECTION
     Dosage: 1TAB UNKNOWN
     Route: 048
     Dates: start: 20140514
  3. GLUTAMINE [Concomitant]
  4. SUPPLEMENT [Concomitant]
  5. MACA [Concomitant]
  6. LOPERAMIDE [Concomitant]

REACTIONS (1)
  - Convulsion [Recovered/Resolved]
